FAERS Safety Report 10723859 (Version 5)
Quarter: 2015Q2

REPORT INFORMATION
  Report Type: Report from Study
  Country: US (occurrence: US)
  Receive Date: 20150120
  Receipt Date: 20150416
  Transmission Date: 20150821
  Serious: Yes (Hospitalization, Disabling)
  Sender: FDA-Public Use
  Company Number: US-ACTELION-A-US2011-53093

PATIENT
  Age: 60 Year
  Sex: Male

DRUGS (4)
  1. TRACLEER [Suspect]
     Active Substance: BOSENTAN\BOSENTAN MONOHYDRATE
     Indication: PULMONARY ARTERIAL HYPERTENSION
     Dosage: UNK
     Route: 048
     Dates: start: 2006
  2. COUMADIN [Concomitant]
     Active Substance: WARFARIN SODIUM
  3. TRACLEER [Suspect]
     Active Substance: BOSENTAN\BOSENTAN MONOHYDRATE
     Dosage: 125 MG, BID
     Route: 048
  4. OXYGEN. [Concomitant]
     Active Substance: OXYGEN
     Dosage: UNK, QD

REACTIONS (8)
  - Pulmonary arterial hypertension [Unknown]
  - Cardiac failure [Unknown]
  - Right ventricular failure [Unknown]
  - Cardiac disorder [Unknown]
  - Fluid retention [Recovering/Resolving]
  - Cardiac failure congestive [Recovering/Resolving]
  - Dizziness [Unknown]
  - Pneumonia [Unknown]

NARRATIVE: CASE EVENT DATE: 20110811
